FAERS Safety Report 21307269 (Version 5)
Quarter: 2022Q4

REPORT INFORMATION
  Report Type: Report from Study
  Country: US (occurrence: US)
  Receive Date: 20220908
  Receipt Date: 20221223
  Transmission Date: 20230113
  Serious: Yes (Other)
  Sender: FDA-Public Use
  Company Number: US-002147023-NVSC2022US202348

PATIENT
  Sex: Male

DRUGS (5)
  1. ENTRESTO [Suspect]
     Active Substance: SACUBITRIL\VALSARTAN
     Indication: Product used for unknown indication
     Dosage: 1 DOSAGE FORM, BID (24/26 MG)
     Route: 065
  2. ENTRESTO [Suspect]
     Active Substance: SACUBITRIL\VALSARTAN
     Dosage: 2 DOSAGE FORM, BID (24/26 MG)
     Route: 065
  3. ENTRESTO [Suspect]
     Active Substance: SACUBITRIL\VALSARTAN
     Dosage: 3 DOSAGE FORM, BID (24/26 MG)
     Route: 065
  4. LASIX [Concomitant]
     Active Substance: FUROSEMIDE
     Indication: Product used for unknown indication
     Dosage: 80 MG
     Route: 065
  5. LASIX [Concomitant]
     Active Substance: FUROSEMIDE
     Dosage: 160 MG
     Route: 065

REACTIONS (10)
  - Pericardial effusion [Unknown]
  - Ascites [Unknown]
  - Blood glucose increased [Unknown]
  - Blood sodium decreased [Recovering/Resolving]
  - Rhinorrhoea [Unknown]
  - Oral fungal infection [Unknown]
  - Oropharyngeal pain [Unknown]
  - Ageusia [Unknown]
  - Decreased appetite [Recovering/Resolving]
  - Blood pressure increased [Unknown]
